FAERS Safety Report 20348074 (Version 1)
Quarter: 2022Q1

REPORT INFORMATION
  Report Type: Report from Study
  Country: US (occurrence: None)
  Receive Date: 20220118
  Receipt Date: 20220118
  Transmission Date: 20220423
  Serious: Yes (Hospitalization, Other)
  Sender: FDA-Public Use
  Company Number: US-ROCHE-2313151

PATIENT
  Age: 59 Year
  Sex: Female
  Weight: 80.1 kg

DRUGS (2)
  1. ATEZOLIZUMAB [Suspect]
     Active Substance: ATEZOLIZUMAB
     Indication: Cholangiocarcinoma
     Dosage: MOST RECENT DOSE ON 09/OCT/2018
     Route: 041
     Dates: start: 20180926
  2. COBIMETINIB [Suspect]
     Active Substance: COBIMETINIB
     Indication: Cholangiocarcinoma
     Dosage: MOST RECENT DOSE ON 09/OCT/2018
     Route: 048
     Dates: start: 20180926

REACTIONS (6)
  - Urinary tract infection [Recovered/Resolved]
  - Diarrhoea [Recovered/Resolved]
  - Vomiting [Recovered/Resolved]
  - Pyrexia [Recovered/Resolved]
  - Lymphocyte count decreased [Unknown]
  - Hypertension [Unknown]

NARRATIVE: CASE EVENT DATE: 20181009
